FAERS Safety Report 24531365 (Version 1)
Quarter: 2024Q4

REPORT INFORMATION
  Report Type: Report from Study
  Country: US (occurrence: US)
  Receive Date: 20241022
  Receipt Date: 20241022
  Transmission Date: 20250115
  Serious: No
  Sender: ROCHE
  Company Number: US-ROCHE-3472630

PATIENT
  Age: 1 Year
  Sex: Male

DRUGS (1)
  1. PULMOZYME [Suspect]
     Active Substance: DORNASE ALFA
     Indication: Cystic fibrosis
     Dosage: TAKE 2.5ML (2.5MG TOTAL) BY NEBULIZATION EVERY 12 HOURS FOR 90 DAYS, STRENGTH: 1MG/ML
     Route: 055

REACTIONS (2)
  - Off label use [Unknown]
  - No adverse event [Unknown]
